FAERS Safety Report 7960502 (Version 5)
Quarter: 2012Q4

REPORT INFORMATION
  Report Type: 
  Country: US (occurrence: US)
  Receive Date: 20110525
  Receipt Date: 20121015
  Transmission Date: 20130627
  Serious: Yes (Hospitalization, Other)
  Sender: FDA-Public Use
  Company Number: US-ASTRAZENECA-2011SE29818

PATIENT
  Age: 83 Year
  Sex: Male

DRUGS (3)
  1. NEXIUM [Suspect]
     Route: 048
  2. TOPROL XL [Suspect]
     Route: 048
  3. AFINITOR [Suspect]
     Route: 065

REACTIONS (13)
  - Neoplasm malignant [Unknown]
  - Myocardial infarction [Unknown]
  - Renal failure [Unknown]
  - Pericardial effusion [Unknown]
  - Renal disorder [Unknown]
  - Liver disorder [Unknown]
  - Recurrent cancer [Unknown]
  - Treatment noncompliance [Unknown]
  - Swelling [Unknown]
  - Pneumonia [Unknown]
  - Gastric disorder [Unknown]
  - Malaise [Unknown]
  - Drug dose omission [Unknown]
